FAERS Safety Report 16105160 (Version 1)
Quarter: 2019Q2

REPORT INFORMATION
  Report Type: Spontaneous
  Country: US (occurrence: US)
  Receive Date: 20190321
  Receipt Date: 20190321
  Transmission Date: 20190711
  Serious: Yes (Disabling, Other)
  Sender: FDA-Public Use
  Company Number: None

PATIENT
  Age: 89 Year
  Sex: Female
  Weight: 63 kg

DRUGS (5)
  1. CALCIUM [Concomitant]
     Active Substance: CALCIUM
  2. VITAMIN B COMPLEX [Concomitant]
     Active Substance: CYANOCOBALAMIN\DEXPANTHENOL\NIACINAMIDE\PYRIDOXINE HYDROCHLORIDE\RIBOFLAVIN 5^-PHOSPHATE SODIUM\THIAMINE HYDROCHLORIDE\VITAMIN B COMPLEX
  3. KETOCONAZOLE 2% CREAM [Suspect]
     Active Substance: KETOCONAZOLE
     Indication: FUNGAL INFECTION
     Route: 061
     Dates: start: 20190306, end: 20190308
  4. TAGAMET [Concomitant]
     Active Substance: CIMETIDINE
  5. AREDS EYE VITAMINS [Concomitant]

REACTIONS (10)
  - Application site pain [None]
  - Visual impairment [None]
  - Restless legs syndrome [None]
  - Breast pain [None]
  - Eye pain [None]
  - Pollakiuria [None]
  - Dry eye [None]
  - Headache [None]
  - Insomnia [None]
  - Pruritus generalised [None]

NARRATIVE: CASE EVENT DATE: 20190306
